FAERS Safety Report 17455059 (Version 5)
Quarter: 2024Q1

REPORT INFORMATION
  Report Type: Spontaneous
  Country: IT (occurrence: IT)
  Receive Date: 20200225
  Receipt Date: 20240213
  Transmission Date: 20240410
  Serious: Yes (Death, Life-Threatening, Hospitalization, Other)
  Sender: FDA-Public Use
  Company Number: IT-002147023-NVSC2020IT033169

PATIENT
  Age: 56 Year
  Sex: Male

DRUGS (20)
  1. CANDESARTAN [Suspect]
     Active Substance: CANDESARTAN
     Indication: Hypertension
     Dosage: 8 MILLIGRAM, ONCE A DAY
     Route: 048
  2. LAMIVUDINE [Suspect]
     Active Substance: LAMIVUDINE
     Indication: Product used for unknown indication
     Dosage: 200 MILLIGRAM, 3 TIMES A DAY (600 MILLIGRAM, ONCE A DAY)
     Route: 065
  3. LAMIVUDINE [Suspect]
     Active Substance: LAMIVUDINE
     Dosage: 100 MILLIGRAM, 3 TIMES A DAY
     Route: 065
  4. LAMIVUDINE [Suspect]
     Active Substance: LAMIVUDINE
     Dosage: 300 MILLIGRAM, ONCE A DAY
     Route: 065
  5. TENOFOVIR DISOPROXIL [Suspect]
     Active Substance: TENOFOVIR DISOPROXIL
     Indication: Product used for unknown indication
     Dosage: 245 MILLIGRAM, ONCE A DAY
     Route: 065
  6. GANCICLOVIR [Suspect]
     Active Substance: GANCICLOVIR
     Indication: Hepatitis
     Dosage: 350 MILLIGRAM, TWO TIMES A DAY
     Route: 042
     Dates: start: 2018
  7. PREDNISONE [Suspect]
     Active Substance: PREDNISONE
     Indication: Chronic inflammatory demyelinating polyradiculoneuropathy
     Dosage: 50 MILLIGRAM, ONCE A DAY
     Route: 048
  8. NALOXONE HYDROCHLORIDE\OXYCODONE HYDROCHLORIDE [Suspect]
     Active Substance: NALOXONE HYDROCHLORIDE\OXYCODONE HYDROCHLORIDE
     Indication: Chronic inflammatory demyelinating polyradiculoneuropathy
     Dosage: 10/5MG, TWO TIMES A DAY
     Route: 048
     Dates: start: 2018
  9. HUMAN IMMUNOGLOBULIN G [Suspect]
     Active Substance: HUMAN IMMUNOGLOBULIN G
     Indication: Chronic inflammatory demyelinating polyradiculoneuropathy
     Dosage: UNK
     Route: 042
  10. RITUXIMAB [Suspect]
     Active Substance: RITUXIMAB
     Indication: Chronic inflammatory demyelinating polyradiculoneuropathy
     Dosage: UNK(2 WEEKS LATER)
     Route: 065
  11. RITUXIMAB [Suspect]
     Active Substance: RITUXIMAB
     Dosage: 1000 MILLIGRAM (2 DOSES)
     Route: 065
     Dates: start: 201806
  12. RITUXIMAB [Suspect]
     Active Substance: RITUXIMAB
     Dosage: UNK, SECOND DOSE AFTER 2 WEEKS
     Route: 065
     Dates: start: 2018
  13. ALENDRONIC ACID [Concomitant]
     Active Substance: ALENDRONIC ACID
     Indication: Chronic inflammatory demyelinating polyradiculoneuropathy
     Dosage: 70 MILLIGRAM, EVERY WEEK
     Route: 048
  14. NALOXONE [Concomitant]
     Active Substance: NALOXONE
     Indication: Chronic inflammatory demyelinating polyradiculoneuropathy
     Dosage: 5 MILLIGRAM, TWO TIMES A DAY
     Route: 048
  15. LEVOTHYROXINE [Concomitant]
     Active Substance: LEVOTHYROXINE\LEVOTHYROXINE SODIUM
     Indication: Chronic inflammatory demyelinating polyradiculoneuropathy
     Dosage: 75 MICROGRAM/MILLILITER, ONCE A DAY
     Route: 048
  16. LEVOTHYROXINE [Concomitant]
     Active Substance: LEVOTHYROXINE\LEVOTHYROXINE SODIUM
     Dosage: 75 MICROGRAM, ONCE A DAY
     Route: 048
  17. RANITIDINE [Concomitant]
     Active Substance: RANITIDINE
     Indication: Product used for unknown indication
     Dosage: 300 MILLIGRAM, ONCE A DAY
     Route: 048
  18. ALLOPURINOL [Concomitant]
     Active Substance: ALLOPURINOL
     Indication: Chronic inflammatory demyelinating polyradiculoneuropathy
     Dosage: 300 MILLIGRAM, ONCE A DAY
     Route: 048
  19. OXYCODONE [Concomitant]
     Active Substance: OXYCODONE\OXYCODONE HYDROCHLORIDE
     Indication: Chronic inflammatory demyelinating polyradiculoneuropathy
     Dosage: 10 MILLIGRAM, TWO TIMES A DAY (20 MG,QD)
     Route: 048
  20. PIPERACILLIN AND TAZOBACTAM [Concomitant]
     Active Substance: PIPERACILLIN SODIUM\TAZOBACTAM SODIUM
     Indication: Antibiotic therapy
     Dosage: 4.5 GRAM, 3 TIMES A DAY
     Route: 042

REACTIONS (17)
  - Multiple organ dysfunction syndrome [Fatal]
  - Hepatitis B reactivation [Fatal]
  - Acute on chronic liver failure [Fatal]
  - Acute hepatic failure [Fatal]
  - Hepatic failure [Fatal]
  - Hepatic encephalopathy [Fatal]
  - Cholecystitis [Fatal]
  - Metabolic acidosis [Fatal]
  - Hepatic cirrhosis [Fatal]
  - International normalised ratio increased [Fatal]
  - Blood lactic acid increased [Fatal]
  - Jaundice [Recovering/Resolving]
  - Ascites [Unknown]
  - Chromaturia [Recovering/Resolving]
  - Nausea [Recovering/Resolving]
  - Diarrhoea [Recovering/Resolving]
  - Product use in unapproved indication [Unknown]

NARRATIVE: CASE EVENT DATE: 20180101
